FAERS Safety Report 4827354-6 (Version None)
Quarter: 2005Q4

REPORT INFORMATION
  Report Type: 
  Country: None (occurrence: None)
  Receive Date: 20051114
  Receipt Date: 20051103
  Transmission Date: 20060501
  Serious: Yes (Hospitalization, Disabling)
  Sender: FDA-Public Use
  Company Number: DE-MERCK-0511DEU00025

PATIENT
  Age: 63 Year
  Sex: Male

DRUGS (1)
  1. VIOXX [Suspect]
     Route: 048
     Dates: start: 20030224

REACTIONS (7)
  - ANXIETY [None]
  - ATRIAL FIBRILLATION [None]
  - HYPERSENSITIVITY [None]
  - HYPERTENSION [None]
  - MUSCLE SPASTICITY [None]
  - TACHYARRHYTHMIA [None]
  - TRANSIENT ISCHAEMIC ATTACK [None]
